FAERS Safety Report 22823561 (Version 5)
Quarter: 2023Q4

REPORT INFORMATION
  Report Type: Report from Study
  Country: US (occurrence: US)
  Receive Date: 20230815
  Receipt Date: 20231127
  Transmission Date: 20240109
  Serious: Yes (Hospitalization)
  Sender: FDA-Public Use
  Company Number: US-ARGENX-2023-ARGX-US001484

PATIENT

DRUGS (2)
  1. VYVGART [Suspect]
     Active Substance: EFGARTIGIMOD ALFA-FCAB
     Indication: Myasthenia gravis
     Dosage: 10 MG/KG
     Route: 042
     Dates: start: 20230420, end: 20230728
  2. HYOSCYAMINE [Concomitant]
     Active Substance: HYOSCYAMINE
     Indication: Product used for unknown indication
     Dosage: UNK

REACTIONS (13)
  - Loss of consciousness [Unknown]
  - Cerebrovascular accident [Unknown]
  - Meningitis fungal [Unknown]
  - Hospitalisation [Unknown]
  - Blood pressure increased [Unknown]
  - Asthenia [Unknown]
  - Myasthenia gravis [Unknown]
  - Fatigue [Not Recovered/Not Resolved]
  - Dyspnoea [Unknown]
  - Insurance issue [Unknown]
  - Pain [Unknown]
  - Drug effect less than expected [Unknown]
  - Urinary tract infection [Unknown]
